FAERS Safety Report 13079059 (Version 1)
Quarter: 2017Q1

REPORT INFORMATION
  Report Type: Spontaneous
  Country: US (occurrence: US)
  Receive Date: 20170102
  Receipt Date: 20170102
  Transmission Date: 20170428
  Serious: No
  Sender: FDA-Public Use
  Company Number: US-ASTRAZENECA-2016SF38137

PATIENT
  Age: 26670 Day
  Sex: Male
  Weight: 56.7 kg

DRUGS (3)
  1. MOVANTIK [Suspect]
     Active Substance: NALOXEGOL OXALATE
     Indication: CONSTIPATION
     Route: 048
  2. COLACE [Concomitant]
     Active Substance: DOCUSATE SODIUM
     Indication: CONSTIPATION
     Route: 048
  3. MIRALAX [Concomitant]
     Active Substance: POLYETHYLENE GLYCOL 3350
     Indication: CONSTIPATION
     Dosage: DAILY
     Route: 048

REACTIONS (9)
  - Decreased appetite [Unknown]
  - Irritability [Unknown]
  - Drug ineffective [Unknown]
  - Gastric disorder [Unknown]
  - Hyperhidrosis [Unknown]
  - Pain [Unknown]
  - Bowel movement irregularity [Unknown]
  - Drug dose omission [Unknown]
  - Haemorrhoids [Unknown]

NARRATIVE: CASE EVENT DATE: 20161228
